FAERS Safety Report 19960664 (Version 1)
Quarter: 2021Q4

REPORT INFORMATION
  Report Type: Spontaneous
  Country: US (occurrence: US)
  Receive Date: 20211016
  Receipt Date: 20211016
  Transmission Date: 20220303
  Serious: Yes (Other)
  Sender: FDA-Public Use
  Company Number: US-TORRENT-00011281

PATIENT
  Sex: Female

DRUGS (1)
  1. LOSARTAN POTASSIUM [Suspect]
     Active Substance: LOSARTAN POTASSIUM
     Indication: Hypertension

REACTIONS (6)
  - Cerebrovascular accident [Unknown]
  - Amnesia [Unknown]
  - Asthenia [Unknown]
  - Dizziness [Unknown]
  - Illness [Recovering/Resolving]
  - Feeling abnormal [Recovering/Resolving]
